FAERS Safety Report 4361334-2 (Version None)
Quarter: 2004Q2

REPORT INFORMATION
  Report Type: 
  Country: None (occurrence: None)
  Receive Date: 20040521
  Receipt Date: 20040517
  Transmission Date: 20050107
  Serious: Yes (Other)
  Sender: FDA-Public Use
  Company Number: 200411726JP

PATIENT
  Sex: Male

DRUGS (1)
  1. TAXOTERE [Suspect]
     Indication: ANGIOSARCOMA
     Route: 041
     Dates: start: 20021201, end: 20040101

REACTIONS (1)
  - ATRIOVENTRICULAR BLOCK [None]
